FAERS Safety Report 7880688-3 (Version None)
Quarter: 2011Q4

REPORT INFORMATION
  Report Type: 
  Country: None (occurrence: None)
  Receive Date: 20111101
  Receipt Date: 20111014
  Transmission Date: 20120403
  Serious: Yes (Death, Other)
  Sender: FDA-Public Use
  Company Number: US-BAYER-200913220NA

PATIENT
  Age: 62 Year
  Sex: Male
  Weight: 118 kg

DRUGS (24)
  1. OMNISCAN [Suspect]
     Dosage: 20 ML, ONCE
     Route: 042
     Dates: start: 20051117, end: 20051117
  2. ASPIRIN [ACETYLSALICYLIC ACID,CALCIUM CARBONATE,CITRIC ACID] [Concomitant]
  3. HYDROCHLOROTHIAZIDE [Concomitant]
  4. OMNISCAN [Suspect]
     Indication: NUCLEAR MAGNETIC RESONANCE IMAGING
     Dosage: 20 ML, ONCE
     Route: 042
     Dates: start: 20030905, end: 20030905
  5. PROHANCE [Suspect]
     Indication: ANGIOGRAM
  6. OMNISCAN [Suspect]
     Indication: ANGIOGRAM
     Dosage: 50 ML, ONCE
     Dates: start: 19991217, end: 19991217
  7. METOPROLOL TARTRATE [Concomitant]
     Dosage: UNK
  8. ENALAPRIL MALEATE [Concomitant]
  9. PLAVIX [Concomitant]
  10. MAGNEVIST [Suspect]
     Indication: NUCLEAR MAGNETIC RESONANCE IMAGING
     Dosage: UNK UNK, ONCE
     Dates: start: 19960712, end: 19960712
  11. PROHANCE [Suspect]
     Indication: NUCLEAR MAGNETIC RESONANCE IMAGING
  12. VITAMIN TAB [Concomitant]
  13. LANTUS [Concomitant]
  14. HUMALOG [Concomitant]
  15. MAGNEVIST [Suspect]
     Dosage: 10 ML, ONCE
     Route: 042
     Dates: start: 20080326, end: 20080326
  16. OPTIMARK [Suspect]
     Indication: NUCLEAR MAGNETIC RESONANCE IMAGING
  17. MULTIHANCE [Suspect]
     Indication: ANGIOGRAM
  18. CRESTOR [Concomitant]
  19. MAGNEVIST [Suspect]
     Indication: ANGIOGRAM
     Dosage: 10 ML, ONCE
     Dates: start: 20060810, end: 20060810
  20. MULTIHANCE [Suspect]
     Indication: NUCLEAR MAGNETIC RESONANCE IMAGING
  21. OPTIMARK [Suspect]
     Indication: ANGIOGRAM
  22. METFORMIN HCL [Concomitant]
  23. VENLAFAXINE [Concomitant]
  24. ALPRAZOLAM [Concomitant]

REACTIONS (17)
  - DEPRESSION [None]
  - SKIN DISORDER [None]
  - DISCOMFORT [None]
  - MOBILITY DECREASED [None]
  - SKIN FIBROSIS [None]
  - ARTHRALGIA [None]
  - CARDIAC DISORDER [None]
  - PAIN [None]
  - LIVER DISORDER [None]
  - NEPHROGENIC SYSTEMIC FIBROSIS [None]
  - CEREBROVASCULAR ACCIDENT [None]
  - ANXIETY [None]
  - GENERAL PHYSICAL HEALTH DETERIORATION [None]
  - PAIN IN EXTREMITY [None]
  - RENAL DISORDER [None]
  - RENAL FAILURE [None]
  - EMOTIONAL DISTRESS [None]
